FAERS Safety Report 12217930 (Version 1)
Quarter: 2016Q1

REPORT INFORMATION
  Report Type: Spontaneous
  Country: US (occurrence: US)
  Receive Date: 20160329
  Receipt Date: 20160329
  Transmission Date: 20160526
  Serious: No
  Sender: FDA-Public Use
  Company Number: US-BAYER-2016-059943

PATIENT
  Age: 90 Year
  Sex: Female
  Weight: 54.42 kg

DRUGS (4)
  1. CARVEDILOL. [Concomitant]
     Active Substance: CARVEDILOL
  2. INDAPAMIDE. [Concomitant]
     Active Substance: INDAPAMIDE
  3. ALKA-MINTS [Concomitant]
  4. CLARITIN [Suspect]
     Active Substance: LORATADINE
     Indication: RHINORRHOEA
     Dosage: UNK UNK, QD
     Route: 048
     Dates: start: 20160311, end: 20160328

REACTIONS (2)
  - Inappropriate schedule of drug administration [None]
  - Drug ineffective [None]

NARRATIVE: CASE EVENT DATE: 20160311
